FAERS Safety Report 18841428 (Version 1)
Quarter: 2021Q1

REPORT INFORMATION
  Report Type: Spontaneous
  Country: CN (occurrence: CN)
  Receive Date: 20210203
  Receipt Date: 20210203
  Transmission Date: 20210419
  Serious: Yes (Other)
  Sender: FDA-Public Use
  Company Number: CN-PFIZER INC-2021086744

PATIENT
  Age: 67 Year
  Sex: Female

DRUGS (1)
  1. ZYVOX [Suspect]
     Active Substance: LINEZOLID
     Indication: SYMPTOMATIC TREATMENT
     Dosage: 0.6 G, 2X/DAY
     Route: 041
     Dates: start: 20210101, end: 20210105

REACTIONS (2)
  - Hypertension [Recovering/Resolving]
  - Dizziness [Recovering/Resolving]

NARRATIVE: CASE EVENT DATE: 20210104
